FAERS Safety Report 9009859 (Version 1)
Quarter: 2013Q1

REPORT INFORMATION
  Report Type: Spontaneous
  Country: US (occurrence: US)
  Receive Date: 20130110
  Receipt Date: 20130110
  Transmission Date: 20140127
  Serious: Yes (Death, Hospitalization)
  Sender: FDA-Public Use
  Company Number: US-SANOFI-AVENTIS-2013SA001329

PATIENT
  Age: 51 Year
  Sex: Female
  Weight: 100 kg

DRUGS (7)
  1. CLEXANE [Suspect]
     Indication: PROPHYLAXIS
     Route: 065
     Dates: start: 20120822, end: 20121114
  2. LENALIDOMIDE [Suspect]
     Indication: PLASMA CELL MYELOMA
     Route: 048
     Dates: start: 20120822, end: 20121114
  3. ACETYLSALICYLIC ACID [Suspect]
     Indication: ANTIPLATELET THERAPY
     Route: 065
     Dates: start: 20120822, end: 20121114
  4. DEXAMETHASONE [Suspect]
     Indication: PLASMA CELL MYELOMA
     Route: 065
     Dates: start: 20120822, end: 20121114
  5. FENTANYL [Concomitant]
     Indication: PAIN
  6. L-THYROXIN [Concomitant]
     Indication: GOITRE
  7. METOCLOPRAMIDE [Concomitant]
     Indication: NAUSEA
     Dosage: DOSE: 60 TRPF/D
     Dates: start: 20100101, end: 20121114

REACTIONS (1)
  - Pulmonary embolism [Fatal]
